FAERS Safety Report 13397846 (Version 2)
Quarter: 2017Q2

REPORT INFORMATION
  Report Type: Spontaneous
  Country: US (occurrence: US)
  Receive Date: 20170403
  Receipt Date: 20170410
  Transmission Date: 20170830
  Serious: Yes (Hospitalization, Other)
  Sender: FDA-Public Use
  Company Number: US-JNJFOC-20170331038

PATIENT
  Age: 56 Year
  Sex: Female
  Weight: 72.58 kg

DRUGS (8)
  1. TOPAMAX [Suspect]
     Active Substance: TOPIRAMATE
     Indication: MIGRAINE
     Dosage: 50 MG, 100 MG AT NIGHT
     Route: 048
     Dates: end: 201703
  2. GABAPENTIN. [Concomitant]
     Active Substance: GABAPENTIN
     Indication: NEUROPATHY PERIPHERAL
     Route: 065
  3. ZOFRAN [Concomitant]
     Active Substance: ONDANSETRON HYDROCHLORIDE
     Indication: MIGRAINE
     Route: 065
  4. SYNTHROID [Concomitant]
     Active Substance: LEVOTHYROXINE SODIUM
     Indication: HYPOTHYROIDISM
     Route: 065
  5. LORAZEPAM. [Concomitant]
     Active Substance: LORAZEPAM
     Indication: ANXIETY
     Route: 065
  6. TOPAMAX [Suspect]
     Active Substance: TOPIRAMATE
     Indication: MIGRAINE
     Dosage: 50 MG, 50 MG AT NIGHT
     Route: 048
     Dates: start: 201703
  7. BACLOFEN. [Concomitant]
     Active Substance: BACLOFEN
     Indication: PAIN IN EXTREMITY
     Route: 065
  8. CYMBALTA [Concomitant]
     Active Substance: DULOXETINE HYDROCHLORIDE
     Indication: PAIN IN EXTREMITY
     Route: 065

REACTIONS (23)
  - Pneumonia [Unknown]
  - Coordination abnormal [Not Recovered/Not Resolved]
  - Mood swings [Unknown]
  - Feeling abnormal [Unknown]
  - Tremor [Unknown]
  - Fibromyalgia [Not Recovered/Not Resolved]
  - Paraesthesia [Unknown]
  - Abnormal loss of weight [Unknown]
  - Diarrhoea [Not Recovered/Not Resolved]
  - Fatigue [Not Recovered/Not Resolved]
  - Memory impairment [Unknown]
  - Eye movement disorder [Unknown]
  - Headache [Unknown]
  - Rash macular [Not Recovered/Not Resolved]
  - Disability [Unknown]
  - Loss of consciousness [Not Recovered/Not Resolved]
  - Hypoaesthesia [Not Recovered/Not Resolved]
  - Anger [Unknown]
  - Burning sensation [Unknown]
  - Disturbance in attention [Unknown]
  - Nervousness [Unknown]
  - Confusional state [Unknown]
  - Central nervous system lesion [Unknown]

NARRATIVE: CASE EVENT DATE: 20170214
